FAERS Safety Report 9444085 (Version 1)
Quarter: 2013Q3

REPORT INFORMATION
  Report Type: Spontaneous
  Country: CA (occurrence: CA)
  Receive Date: 20130807
  Receipt Date: 20130807
  Transmission Date: 20140515
  Serious: Yes (Other)
  Sender: FDA-Public Use
  Company Number: 2013SP005640

PATIENT
  Age: 55 Year
  Sex: Female

DRUGS (6)
  1. VANCOMYCIN [Suspect]
     Indication: MENINGITIS BACTERIAL
  2. VANCOMYCIN [Suspect]
     Indication: MENINGITIS BACTERIAL
  3. MEROPENEM [Suspect]
     Indication: MENINGITIS BACTERIAL
  4. CEFTRIAXONE [Suspect]
     Indication: PYREXIA
  5. CEFTAZIDIME [Suspect]
     Indication: MENINGITIS BACTERIAL
  6. CIPROFLOXACIN [Concomitant]
     Indication: MENINGITIS BACTERIAL

REACTIONS (8)
  - Drug reaction with eosinophilia and systemic symptoms [Recovered/Resolved]
  - Histiocytosis haematophagic [Recovered/Resolved]
  - Rash [Recovered/Resolved]
  - Pyrexia [Recovered/Resolved]
  - Eosinophilia [Recovered/Resolved]
  - Hepatic failure [Recovered/Resolved]
  - Renal failure [Recovered/Resolved]
  - Drug hypersensitivity [Unknown]
